FAERS Safety Report 22288512 (Version 1)
Quarter: 2023Q2

REPORT INFORMATION
  Report Type: Spontaneous
  Country: CN (occurrence: CN)
  Receive Date: 20230505
  Receipt Date: 20230505
  Transmission Date: 20230721
  Serious: Yes (Hospitalization, Other)
  Sender: FDA-Public Use
  Company Number: CN-PFIZER INC-PV202300078097

PATIENT
  Age: 6 Year
  Sex: Female
  Weight: 20 kg

DRUGS (2)
  1. CYTARABINE [Suspect]
     Active Substance: CYTARABINE
     Indication: Acute lymphocytic leukaemia
     Dosage: 40 MG,2X DAY +5% GLUCOSE INJECTION 100ML FROM 11TH TO 17TH
     Route: 041
     Dates: start: 20230411, end: 20230417
  2. CYCLOPHOSPHAMIDE [Suspect]
     Active Substance: CYCLOPHOSPHAMIDE
     Indication: Acute lymphocytic leukaemia
     Dosage: 0.8 G, 1X/DAY +0.9% SODIUM CHLORIDE INJECTION 100ML ONCE AT 11TH
     Route: 041
     Dates: start: 20230411, end: 20230411

REACTIONS (2)
  - Myelosuppression [Recovering/Resolving]
  - Pneumonia fungal [Recovering/Resolving]

NARRATIVE: CASE EVENT DATE: 20230419
